FAERS Safety Report 7470371-0 (Version None)
Quarter: 2011Q2

REPORT INFORMATION
  Report Type: 
  Country: None (occurrence: None)
  Receive Date: 20110510
  Receipt Date: 20110411
  Transmission Date: 20111010
  Serious: No
  Sender: FDA-Public Use
  Company Number: US-BAYER-2011-032378

PATIENT
  Sex: Female

DRUGS (3)
  1. ANTIHYPERTENSIVES [Concomitant]
  2. ALEVE (CAPLET) [Suspect]
     Dosage: 1 UNK, UNK
     Route: 048
  3. GINKO BILOBA [Concomitant]

REACTIONS (3)
  - ERUCTATION [None]
  - DECREASED APPETITE [None]
  - NON-CARDIAC CHEST PAIN [None]
